FAERS Safety Report 14777063 (Version 1)
Quarter: 2018Q2

REPORT INFORMATION
  Report Type: Spontaneous
  Country: US (occurrence: US)
  Receive Date: 20180419
  Receipt Date: 20180419
  Transmission Date: 20180711
  Serious: Yes (Hospitalization, Other)
  Sender: FDA-Public Use
  Company Number: US-TEAM SPRAYFLEX, LLC-2046006

PATIENT
  Age: 44 Year
  Sex: Male
  Weight: 79.55 kg

DRUGS (1)
  1. GH FLEX (HOMEOPATHICS) [Suspect]
     Active Substance: HOMEOPATHICS
     Route: 060
     Dates: start: 20180217, end: 20180301

REACTIONS (1)
  - Thrombosis [Recovering/Resolving]

NARRATIVE: CASE EVENT DATE: 20180301
